FAERS Safety Report 25528542 (Version 2)
Quarter: 2025Q3

REPORT INFORMATION
  Report Type: Spontaneous
  Country: EU (occurrence: EU)
  Receive Date: 20250708
  Receipt Date: 20250809
  Transmission Date: 20251021
  Serious: Yes (Other)
  Sender: ALEXION PHARMACEUTICALS
  Company Number: None

PATIENT
  Age: 63 Year
  Sex: Female
  Weight: 168 kg

DRUGS (7)
  1. TICAGRELOR [Suspect]
     Active Substance: TICAGRELOR
     Indication: Acute myocardial infarction
  2. TICAGRELOR [Suspect]
     Active Substance: TICAGRELOR
     Dosage: ONCE
     Dates: start: 20220116, end: 20220118
  3. LERCANIDIPINE [Concomitant]
     Active Substance: LERCANIDIPINE
  4. ATORVASTATIN [Concomitant]
     Active Substance: ATORVASTATIN
  5. Acard [Concomitant]
  6. TELMISARTAN [Concomitant]
     Active Substance: TELMISARTAN
  7. BISOPROLOL [Concomitant]
     Active Substance: BISOPROLOL

REACTIONS (7)
  - Dyspnoea [Recovered/Resolved]
  - Vomiting [Recovered/Resolved]
  - Asthenia [Recovered/Resolved]
  - Decreased appetite [Recovered/Resolved]
  - Tremor [Recovered/Resolved]
  - Dizziness [Recovered/Resolved]
  - Hypotension [Recovered/Resolved]

NARRATIVE: CASE EVENT DATE: 20220116
